FAERS Safety Report 8854950 (Version 1)
Quarter: 2012Q4

REPORT INFORMATION
  Report Type: 
  Country: US (occurrence: US)
  Receive Date: 20121023
  Receipt Date: 20121023
  Transmission Date: 20130627
  Serious: No
  Sender: FDA-Public Use
  Company Number: US-PFIZER INC-2012262465

PATIENT
  Age: 53 Year
  Sex: Male
  Weight: 90.7 kg

DRUGS (5)
  1. CELEBREX [Suspect]
     Indication: SWELLING
     Dosage: 200 mg, daily
     Dates: start: 201205, end: 2012
  2. CELEBREX [Suspect]
     Indication: ARTHRITIS
     Dosage: 200 mg, daily
     Dates: start: 201208, end: 2012
  3. CELEBREX [Suspect]
     Dosage: 200 mg, daily
     Dates: start: 20121018
  4. FOSINOPRIL [Concomitant]
     Indication: HYPERTENSION
     Dosage: 20 mg, daily
  5. METOPROLOL [Concomitant]
     Indication: HYPERTENSION
     Dosage: 50 mg, daily

REACTIONS (5)
  - Nausea [Unknown]
  - Abdominal pain upper [Unknown]
  - Gastroenteritis viral [Unknown]
  - Diarrhoea [Unknown]
  - Cholelithiasis [Unknown]
